FAERS Safety Report 7435744-0 (Version None)
Quarter: 2011Q2

REPORT INFORMATION
  Report Type: 
  Country: None (occurrence: None)
  Receive Date: 20110425
  Receipt Date: 20110412
  Transmission Date: 20111010
  Serious: Yes (Other)
  Sender: FDA-Public Use
  Company Number: US-CELGENEUS-163-21660-11041992

PATIENT

DRUGS (2)
  1. CARBOPLATIN [Suspect]
     Route: 065
  2. ABRAXANE [Suspect]
     Route: 051

REACTIONS (14)
  - NEUROPATHY PERIPHERAL [None]
  - NAUSEA [None]
  - ARTHRALGIA [None]
  - HYPERSENSITIVITY [None]
  - THROMBOCYTOPENIA [None]
  - MYALGIA [None]
  - MALIGNANT MELANOMA [None]
  - LYMPHOPENIA [None]
  - NEUTROPENIA [None]
  - LEUKOPENIA [None]
  - HERPES ZOSTER [None]
  - ANAEMIA [None]
  - FATIGUE [None]
  - VOMITING [None]
